FAERS Safety Report 18858385 (Version 1)
Quarter: 2021Q1

REPORT INFORMATION
  Report Type: Spontaneous
  Country: US (occurrence: US)
  Receive Date: 20210205
  Receipt Date: 20210205
  Transmission Date: 20210420
  Serious: Yes (Other)
  Sender: FDA-Public Use
  Company Number: None

PATIENT
  Age: 45 Year
  Sex: Female
  Weight: 72 kg

DRUGS (3)
  1. DEXTROAMPHET SACCHARAT, AMPHET ASPARTATE, DEXTROAMPHET SULFATE AND AMPHET SULFAT [Suspect]
     Active Substance: AMPHETAMINE ASPARTATE\AMPHETAMINE SULFATE\DEXTROAMPHETAMINE SACCHARATE\DEXTROAMPHETAMINE SULFATE
     Indication: ATTENTION DEFICIT HYPERACTIVITY DISORDER
     Dosage: ?          QUANTITY:1 TABLET(S);?
     Route: 048
  2. PROBIOTICS [Concomitant]
     Active Substance: PROBIOTICS NOS
  3. MULTIVITAMINS [Concomitant]
     Active Substance: VITAMINS

REACTIONS (19)
  - Migraine [None]
  - Impaired work ability [None]
  - Irritability [None]
  - Therapeutic product effect decreased [None]
  - Product supply issue [None]
  - Wrong technique in product usage process [None]
  - Eyelash injury [None]
  - Affective disorder [None]
  - Fatigue [None]
  - Headache [None]
  - Crying [None]
  - Product quality issue [None]
  - Lethargy [None]
  - Weight increased [None]
  - Disturbance in attention [None]
  - Nausea [None]
  - Vision blurred [None]
  - Loss of personal independence in daily activities [None]
  - Glare [None]

NARRATIVE: CASE EVENT DATE: 20200416
